FAERS Safety Report 6224084 (Version 2)
Quarter: 2012Q4

REPORT INFORMATION
  Report Type: 
  Country: US (occurrence: US)
  Receive Date: 20070126
  Receipt Date: 20121114
  Transmission Date: 20130627
  Serious: Yes (Hospitalization)
  Sender: FDA-Public Use
  Company Number: US-JNJFOC-20070105248

PATIENT
  Age: 72 Year
  Sex: Female

DRUGS (3)
  1. MOTRIN [Suspect]
     Indication: OSTEOARTHRITIS
     Route: 048
     Dates: start: 200311, end: 200312
  2. ALEVE [Suspect]
     Indication: OSTEOARTHRITIS
     Route: 048
     Dates: start: 200512
  3. NAPROSYN [Suspect]
     Indication: OSTEOARTHRITIS
     Route: 048
     Dates: start: 200512

REACTIONS (5)
  - Hiatus hernia [Unknown]
  - Diverticulum [Unknown]
  - Fluid overload [Recovered/Resolved]
  - Gastrointestinal haemorrhage [Recovered/Resolved]
  - Iron deficiency anaemia [Recovered/Resolved]
